FAERS Safety Report 25558072 (Version 1)
Quarter: 2025Q3

REPORT INFORMATION
  Report Type: Spontaneous
  Country: US (occurrence: US)
  Receive Date: 20250715
  Receipt Date: 20250715
  Transmission Date: 20251021
  Serious: No
  Sender: NOVO NORDISK
  Company Number: US-NOVOPROD-1414851

PATIENT
  Age: 59 Year

DRUGS (2)
  1. OZEMPIC [Suspect]
     Active Substance: SEMAGLUTIDE
     Dosage: 0.5 MG, QW
     Route: 058
     Dates: start: 20250213
  2. OZEMPIC [Suspect]
     Active Substance: SEMAGLUTIDE
     Indication: Type 2 diabetes mellitus
     Dosage: 0.5 MG, QW
     Route: 058
     Dates: start: 20250213

REACTIONS (5)
  - Thirst [Recovered/Resolved]
  - Hunger [Recovered/Resolved]
  - Headache [Recovered/Resolved]
  - Decreased appetite [Not Recovered/Not Resolved]
  - Blood glucose abnormal [Recovered/Resolved]

NARRATIVE: CASE EVENT DATE: 20250301
